FAERS Safety Report 9286816 (Version 1)
Quarter: 2013Q2

REPORT INFORMATION
  Report Type: Spontaneous
  Country: JP (occurrence: None)
  Receive Date: 20130509
  Receipt Date: 20130509
  Transmission Date: 20140414
  Serious: Yes (Hospitalization)
  Sender: FDA-Public Use
  Company Number: SP1201300292

PATIENT
  Age: 85 Year
  Sex: Female

DRUGS (7)
  1. AMITIZA (LUBIPROSTONE) CAPSULE, 24MCG [Suspect]
     Indication: CONSTIPATION
     Route: 048
     Dates: start: 20130208, end: 20130225
  2. VESICARE OD [Concomitant]
  3. METHYCOBAL (MECOBALAMIN) [Concomitant]
  4. MAGMITT (MAGNESIUM OXIDE) TABLET [Concomitant]
  5. ALOSENN (ACHILLEA MILLEFOLIUM, RUBIA TINCTORUM ROOT TINCTURE, SENNA ALEXANDRINA FRUIT, SENNA ALEXANDRINA LEAF, TARAXACUM OFFICINALE) GRANULE [Concomitant]
  6. LAXOBERON (SODIUM PICOSULFATE) SOLUTION (EXCEPT SYRUP) [Concomitant]
  7. MASHININGAN (MASHININGAN) SOLUTION (EXCEPT SYRUP) [Concomitant]

REACTIONS (3)
  - Fatigue [None]
  - Blood sodium decreased [None]
  - Malaise [None]
